FAERS Safety Report 15524817 (Version 2)
Quarter: 2018Q4

REPORT INFORMATION
  Report Type: Spontaneous
  Country: US (occurrence: US)
  Receive Date: 20181019
  Receipt Date: 20181113
  Transmission Date: 20190205
  Serious: Yes (Other)
  Sender: FDA-Public Use
  Company Number: US-AGIOS-1809US00233

PATIENT

DRUGS (1)
  1. TIBSOVO [Suspect]
     Active Substance: IVOSIDENIB
     Indication: ACUTE MYELOID LEUKAEMIA
     Dosage: 3 WEEKS
     Dates: start: 2018

REACTIONS (1)
  - Differentiation syndrome [Unknown]

NARRATIVE: CASE EVENT DATE: 2018
